FAERS Safety Report 23398333 (Version 1)
Quarter: 2024Q1

REPORT INFORMATION
  Report Type: Spontaneous
  Country: US (occurrence: US)
  Receive Date: 20240112
  Receipt Date: 20240112
  Transmission Date: 20240409
  Serious: Yes (Other)
  Sender: FDA-Public Use
  Company Number: US-ORGANON-O2401USA000181

PATIENT
  Age: 73 Year
  Sex: Female

DRUGS (2)
  1. COZAAR [Suspect]
     Active Substance: LOSARTAN POTASSIUM
     Indication: Coronary artery stenosis
     Dosage: UNK
  2. COZAAR [Suspect]
     Active Substance: LOSARTAN POTASSIUM
     Indication: Coronary artery stenosis

REACTIONS (1)
  - Product use in unapproved indication [Unknown]
